FAERS Safety Report 8138809-3 (Version None)
Quarter: 2012Q1

REPORT INFORMATION
  Report Type: 
  Country: None (occurrence: None)
  Receive Date: 20120215
  Receipt Date: 20120207
  Transmission Date: 20120608
  Serious: Yes (Other)
  Sender: FDA-Public Use
  Company Number: GR-PFIZER INC-2012032434

PATIENT
  Age: 8 Year
  Sex: Male

DRUGS (1)
  1. METHYLPREDNISOLONE [Suspect]
     Indication: LINEAR IGA DISEASE
     Dosage: 16 MG, UNK

REACTIONS (2)
  - LINEAR IGA DISEASE [None]
  - BLOOD PRESSURE INCREASED [None]
